FAERS Safety Report 5733427-6 (Version None)
Quarter: 2008Q2

REPORT INFORMATION
  Report Type: 
  Country: None (occurrence: None)
  Receive Date: 20080509
  Receipt Date: 20080428
  Transmission Date: 20081010
  Serious: Yes (Other)
  Sender: FDA-Public Use
  Company Number: JP-GENENTECH-260618

PATIENT
  Sex: Male
  Weight: 57 kg

DRUGS (5)
  1. RITUXAN [Suspect]
     Indication: LIVER TRANSPLANT
     Dosage: 500 MG, UNK
     Dates: start: 20071006
  2. CELLCEPT [Suspect]
     Indication: PROPHYLAXIS AGAINST TRANSPLANT REJECTION
     Dosage: 250 MG, BID
     Route: 048
     Dates: start: 20071021
  3. PROGRAF [Suspect]
     Indication: DRUG USE FOR UNKNOWN INDICATION
  4. UNSPECIFIED DRUG [Suspect]
     Indication: DRUG USE FOR UNKNOWN INDICATION
  5. DENOSINE [Suspect]
     Indication: DRUG USE FOR UNKNOWN INDICATION

REACTIONS (2)
  - CYTOMEGALOVIRUS VIRAEMIA [None]
  - NEUTROPHIL COUNT DECREASED [None]
